FAERS Safety Report 6169344-X (Version None)
Quarter: 2009Q2

REPORT INFORMATION
  Report Type: 
  Country: None (occurrence: None)
  Receive Date: 20090424
  Receipt Date: 20090414
  Transmission Date: 20091009
  Serious: Yes (Other)
  Sender: FDA-Public Use
  Company Number: 1000005858

PATIENT
  Age: 40 Year
  Sex: Female
  Weight: 80 kg

DRUGS (2)
  1. ESCITALOPRAM OXALATE [Suspect]
     Dosage: 1000 MG (1000 MG, ONCE), ORAL; ORAL
     Route: 048
     Dates: start: 20090414, end: 20090414
  2. ALCOHOL (LIQUID) [Suspect]
     Dosage: (ONCE), ORAL
     Route: 048
     Dates: start: 20090414, end: 20090414

REACTIONS (2)
  - INTENTIONAL OVERDOSE [None]
  - SUICIDE ATTEMPT [None]
